FAERS Safety Report 21950452 (Version 1)
Quarter: 2023Q1

REPORT INFORMATION
  Report Type: Spontaneous
  Country: DE (occurrence: DE)
  Receive Date: 20230203
  Receipt Date: 20230203
  Transmission Date: 20230418
  Serious: Yes (Hospitalization, Other)
  Sender: FDA-Public Use
  Company Number: DE-NOVOPROD-1018007

PATIENT
  Age: 23 Year
  Sex: Female

DRUGS (3)
  1. PROTAPHANE [Suspect]
     Active Substance: INSULIN HUMAN
     Indication: Type 1 diabetes mellitus
     Dosage: 16 IE- 0-8 IE
  2. INSULIN LISPRO [Concomitant]
     Active Substance: INSULIN LISPRO
     Indication: Type 1 diabetes mellitus
     Dosage: UNK (INSULIN-TO-CARB RATIO OF 1:1)
     Route: 042
  3. MISOPROSTOL [Concomitant]
     Active Substance: MISOPROSTOL
     Indication: Labour induction
     Dosage: UNK

REACTIONS (4)
  - Stillbirth [Unknown]
  - Hiatus hernia [Unknown]
  - Euglycaemic diabetic ketoacidosis [Unknown]
  - Maternal exposure during pregnancy [Recovered/Resolved]
